APPROVED DRUG PRODUCT: STERI-STAT
Active Ingredient: CHLORHEXIDINE GLUCONATE
Strength: 4%
Dosage Form/Route: SOLUTION;TOPICAL
Application: A070104 | Product #001
Applicant: MATRIX MEDICAL CORP
Approved: Jul 24, 1986 | RLD: No | RS: No | Type: DISCN